FAERS Safety Report 4477397-X (Version None)
Quarter: 2004Q4

REPORT INFORMATION
  Report Type: 
  Country: None (occurrence: None)
  Receive Date: 20041013
  Receipt Date: 20041004
  Transmission Date: 20050328
  Serious: Yes (Other)
  Sender: FDA-Public Use
  Company Number: 2004-09-0422

PATIENT
  Age: 80 Year
  Sex: Female

DRUGS (7)
  1. NAQUA [Suspect]
     Indication: HYPERTENSION
     Dosage: 2 MG QD ORAL
     Route: 048
     Dates: start: 20030506, end: 20040402
  2. LANDEL (EFONIDIPINE) [Concomitant]
  3. RENIVACE [Concomitant]
  4. DOXAZOSIN MESYLATE [Concomitant]
  5. TOLBUTAMIDE [Concomitant]
  6. TOCOPHERIL NICOTINATE [Concomitant]
  7. HALCION [Concomitant]

REACTIONS (4)
  - BLOOD UREA INCREASED [None]
  - DEHYDRATION [None]
  - LACUNAR INFARCTION [None]
  - MENIERE'S DISEASE [None]
